FAERS Safety Report 4976188-0 (Version None)
Quarter: 2006Q2

REPORT INFORMATION
  Report Type: 
  Country: None (occurrence: None)
  Receive Date: 20060419
  Receipt Date: 20060407
  Transmission Date: 20061013
  Serious: Yes (Other)
  Sender: FDA-Public Use
  Company Number: US-JNJFOC-20060401850

PATIENT
  Sex: Male

DRUGS (1)
  1. REOPRO [Suspect]
     Indication: STENT PLACEMENT
     Dosage: 2MG/ML, 5 ML

REACTIONS (1)
  - THROMBOSIS [None]
